FAERS Safety Report 21931802 (Version 1)
Quarter: 2023Q1

REPORT INFORMATION
  Report Type: Spontaneous
  Country: US (occurrence: US)
  Receive Date: 20230131
  Receipt Date: 20230131
  Transmission Date: 20230418
  Serious: Yes (Other)
  Sender: FDA-Public Use
  Company Number: US-PFIZER INC-202300039744

PATIENT
  Age: 54 Year
  Sex: Female
  Weight: 86.18 kg

DRUGS (1)
  1. PAXLOVID [Suspect]
     Active Substance: NIRMATRELVIR\RITONAVIR
     Indication: COVID-19 treatment
     Dosage: [PF-07321332 300 MG]/[RITONAVIR 100 MG]; 2X/DAY
     Dates: start: 20230123, end: 20230125

REACTIONS (7)
  - Hypersensitivity [Unknown]
  - Dyspnoea [Unknown]
  - Swollen tongue [Recovering/Resolving]
  - Pharyngeal swelling [Recovering/Resolving]
  - Drainage [Unknown]
  - Abdominal pain [Unknown]
  - Dysgeusia [Recovered/Resolved]

NARRATIVE: CASE EVENT DATE: 20230101
